FAERS Safety Report 11265200 (Version 1)
Quarter: 2015Q3

REPORT INFORMATION
  Report Type: Spontaneous
  Country: IT (occurrence: IT)
  Receive Date: 20150713
  Receipt Date: 20150713
  Transmission Date: 20151125
  Serious: Yes (Other)
  Sender: FDA-Public Use
  Company Number: CHPA2015IT007832

PATIENT
  Age: 36 Year
  Sex: Female

DRUGS (1)
  1. FERROUS SULFATE [Suspect]
     Active Substance: FERROUS SULFATE\FERROUS SULFATE, DRIED
     Indication: PRODUCT USED FOR UNKNOWN INDICATION
     Dosage: UNK UNK, QD
     Route: 048

REACTIONS (9)
  - Interstitial lung disease [Unknown]
  - Chest discomfort [Unknown]
  - Maternal exposure during pregnancy [Unknown]
  - Accidental exposure to product [Unknown]
  - Bronchostenosis [Unknown]
  - Cough [Unknown]
  - Atelectasis [Unknown]
  - Dyspnoea [Unknown]
  - Lung consolidation [Unknown]
